FAERS Safety Report 10559067 (Version 2)
Quarter: 2014Q4

REPORT INFORMATION
  Report Type: Spontaneous
  Country: IN (occurrence: IN)
  Receive Date: 20141103
  Receipt Date: 20141103
  Transmission Date: 20150529
  Serious: Yes (Death, Life-Threatening, Other)
  Sender: FDA-Public Use
  Company Number: IN-ACCORD-026660

PATIENT
  Age: 46 Year
  Sex: Female

DRUGS (1)
  1. DOCETAXEL. [Suspect]
     Active Substance: DOCETAXEL
     Indication: METASTASES TO LIVER
     Dosage: RECEIVED THREE CYCLES.?EACH CYCLE CONSISTING OF 3 WEEKS OF THERAPY FOLLOWED BY 1 WEEK REST.
     Route: 042

REACTIONS (2)
  - Toxic epidermal necrolysis [Fatal]
  - Encephalopathy [Unknown]
